FAERS Safety Report 7894298-5 (Version None)
Quarter: 2011Q4

REPORT INFORMATION
  Report Type: 
  Country: None (occurrence: None)
  Receive Date: 20111104
  Receipt Date: 20111026
  Transmission Date: 20120403
  Serious: Yes (Other)
  Sender: FDA-Public Use
  Company Number: US-ASTRAZENECA-2011SE64792

PATIENT
  Age: 47 Year
  Sex: Female
  Weight: 77.1 kg

DRUGS (11)
  1. SEROQUEL [Suspect]
     Indication: BIPOLAR DISORDER
     Route: 048
  2. CELEBREX [Concomitant]
     Indication: ARTHRALGIA
  3. LEXAPRO [Concomitant]
     Indication: BIPOLAR DISORDER
  4. BUSPAR [Concomitant]
     Indication: ANXIETY
  5. LEXAPRO [Concomitant]
     Indication: DEPRESSION
  6. LEXAPRO [Concomitant]
     Indication: ANXIETY
  7. BUSPAR [Concomitant]
     Indication: DEPRESSION
  8. ZANTAC [Concomitant]
     Indication: GASTRIC ULCER
  9. XANAX [Concomitant]
     Indication: ANXIETY
  10. DILANTIN [Concomitant]
     Indication: EPILEPSY
  11. BUSPAR [Concomitant]
     Indication: BIPOLAR DISORDER

REACTIONS (4)
  - LUNG NEOPLASM MALIGNANT [None]
  - WEIGHT DECREASED [None]
  - CHEST PAIN [None]
  - DRUG DOSE OMISSION [None]
